FAERS Safety Report 22330537 (Version 1)
Quarter: 2023Q2

REPORT INFORMATION
  Report Type: Spontaneous
  Country: GB (occurrence: GB)
  Receive Date: 20230517
  Receipt Date: 20230517
  Transmission Date: 20230721
  Serious: Yes (Other)
  Sender: FDA-Public Use
  Company Number: GB-MHRA-MED-202305061014105730-RSKDQ

PATIENT
  Age: 29 Year
  Sex: Female
  Weight: 72 kg

DRUGS (2)
  1. SERTRALINE [Suspect]
     Active Substance: SERTRALINE HYDROCHLORIDE
     Indication: Adverse drug reaction
     Dosage: 100 MG AT MORNING, TRIED 25 MG, 50 MG AT DAY/NIGHT.; ;
     Route: 065
     Dates: start: 20040106
  2. OMEPRAZOLE [Concomitant]
     Active Substance: OMEPRAZOLE
     Indication: Adverse drug reaction
     Dosage: UNK
     Route: 065

REACTIONS (3)
  - Carpal tunnel syndrome [Not Recovered/Not Resolved]
  - Confusional state [Not Recovered/Not Resolved]
  - Sexual dysfunction [Not Recovered/Not Resolved]

NARRATIVE: CASE EVENT DATE: 20090101
